FAERS Safety Report 5861616-9 (Version None)
Quarter: 2008Q3

REPORT INFORMATION
  Report Type: 
  Country: None (occurrence: None)
  Receive Date: 20080827
  Receipt Date: 20080602
  Transmission Date: 20090109
  Serious: Yes (Hospitalization)
  Sender: FDA-Public Use
  Company Number: US-ABBOTT-08P-163-0454403-00

PATIENT
  Sex: Male
  Weight: 93.07 kg

DRUGS (10)
  1. NIASPAN [Suspect]
     Indication: BLOOD CHOLESTEROL INCREASED
     Dosage: WHITE
     Route: 048
     Dates: start: 20050101
  2. NIASPAN [Suspect]
     Dosage: WHITE
     Route: 048
     Dates: end: 20080101
  3. NIASPAN [Suspect]
     Dosage: ORANGE
     Route: 048
     Dates: start: 20080101, end: 20080101
  4. NIASPAN [Suspect]
     Dosage: ORANGE
     Route: 048
     Dates: start: 20080501, end: 20080603
  5. HYTRIN [Suspect]
     Indication: PROSTATOMEGALY
     Dates: start: 20080101
  6. AVADART [Suspect]
     Indication: PROSTATOMEGALY
     Dates: start: 20080101
  7. METOPROLOL TARTRATE [Concomitant]
     Indication: HYPERTENSION
     Route: 048
  8. VALSARTAN [Concomitant]
     Indication: HYPERTENSION
     Route: 048
  9. TERAZOSIN HYDROCHLORIDE [Concomitant]
     Indication: PROSTATOMEGALY
     Dates: start: 20080101
  10. DUTASTERIDE [Concomitant]
     Indication: PROSTATOMEGALY
     Dates: start: 20080101

REACTIONS (2)
  - ATRIAL FIBRILLATION [None]
  - FLUSHING [None]
